FAERS Safety Report 6148503-6 (Version None)
Quarter: 2009Q2

REPORT INFORMATION
  Report Type: 
  Country: None (occurrence: None)
  Receive Date: 20090406
  Receipt Date: 20090406
  Transmission Date: 20091009
  Serious: Yes (Other)
  Sender: FDA-Public Use
  Company Number: None

PATIENT
  Age: 77 Year
  Sex: Male
  Weight: 81.6475 kg

DRUGS (1)
  1. FLUOROURACIL [Suspect]
     Indication: ACTINIC KERATOSIS
     Dosage: THIN COAT 2X DAILY
     Dates: start: 20090213, end: 20090307

REACTIONS (3)
  - HYPERSENSITIVITY [None]
  - IMPAIRED HEALING [None]
  - PAIN [None]
